FAERS Safety Report 14255347 (Version 1)
Quarter: 2017Q4

REPORT INFORMATION
  Report Type: Report from Study
  Country: CO (occurrence: CO)
  Receive Date: 20171206
  Receipt Date: 20171206
  Transmission Date: 20180321
  Serious: Yes (Hospitalization)
  Sender: FDA-Public Use
  Company Number: CO-ACTELION-A-CH2017-163180

PATIENT
  Age: 64 Year
  Sex: Female

DRUGS (1)
  1. TRACLEER [Suspect]
     Active Substance: BOSENTAN
     Indication: PULMONARY ARTERIAL HYPERTENSION
     Dosage: 62.5 MG, Q12HRS
     Route: 048
     Dates: start: 20170810

REACTIONS (2)
  - Thyroiditis [Unknown]
  - Inflammation [Unknown]

NARRATIVE: CASE EVENT DATE: 201711
